FAERS Safety Report 8950324 (Version 1)
Quarter: 2012Q4

REPORT INFORMATION
  Report Type: Spontaneous
  Country: US (occurrence: None)
  Receive Date: 20121130
  Receipt Date: 20121130
  Transmission Date: 20130627
  Serious: No
  Sender: FDA-Public Use
  Company Number: None

PATIENT
  Age: 67 Year
  Sex: Female

DRUGS (1)
  1. RANITIDINE [Suspect]
     Indication: OESOPHAGEAL ACID REFLUX
     Dosage: 150mg twice a day po
     Route: 048
     Dates: start: 20120914, end: 20121102

REACTIONS (4)
  - Nausea [None]
  - Vomiting [None]
  - Product odour abnormal [None]
  - Product quality issue [None]
